FAERS Safety Report 20988671 (Version 1)
Quarter: 2022Q2

REPORT INFORMATION
  Report Type: Report from Study
  Country: US (occurrence: US)
  Receive Date: 20220621
  Receipt Date: 20220621
  Transmission Date: 20220721
  Serious: Yes (Disabling)
  Sender: FDA-Public Use
  Company Number: US-NOVARTISTESTPH-NVSC2022US139577

PATIENT
  Age: 58 Year
  Sex: Female

DRUGS (2)
  1. KISQALI [Suspect]
     Active Substance: RIBOCICLIB
     Indication: Product used for unknown indication
     Dosage: 600 MG (3 WEEKS TAKEN AND 1 WEEK OFF)
     Route: 048
     Dates: start: 20220124
  2. ANASTROZOLE [Concomitant]
     Active Substance: ANASTROZOLE
     Indication: Product used for unknown indication
     Route: 065

REACTIONS (3)
  - Dry eye [Unknown]
  - Lacrimation increased [Unknown]
  - Eye pain [Unknown]

NARRATIVE: CASE EVENT DATE: 20220124
